FAERS Safety Report 8972483 (Version 1)
Quarter: 2012Q4

REPORT INFORMATION
  Report Type: 
  Country: US (occurrence: US)
  Receive Date: 20121219
  Receipt Date: 20121219
  Transmission Date: 20130627
  Serious: Yes (Hospitalization)
  Sender: FDA-Public Use
  Company Number: US-AMGEN-USASP2012081083

PATIENT
  Age: 57 Year
  Sex: Female
  Weight: 57.14 kg

DRUGS (11)
  1. PROCRIT [Suspect]
     Indication: PRODUCT USED FOR UNKNOWN INDICATION
     Dosage: UNK unit, UNK
     Route: 058
  2. AMINOCAPROIC ACID [Concomitant]
     Dosage: UNK
  3. AMETHAPRED [Concomitant]
     Dosage: UNK
  4. FERROUS SULFATE [Concomitant]
     Dosage: UNK
  5. FOLIC ACID [Concomitant]
     Dosage: UNK
  6. IMMUNE GLOBULIN [Concomitant]
     Dosage: UNK
  7. FLORANEX [Concomitant]
     Dosage: UNK
  8. PRILOSEC                           /00661201/ [Concomitant]
     Dosage: UNK
  9. THERAGRAN                          /01824401/ [Concomitant]
     Dosage: UNK
  10. IMODIUM [Concomitant]
     Dosage: UNK
  11. TYLENOL /00020001/ [Concomitant]
     Dosage: UNK

REACTIONS (1)
  - Hospitalisation [Not Recovered/Not Resolved]
